FAERS Safety Report 5927066-1 (Version None)
Quarter: 2008Q4

REPORT INFORMATION
  Report Type: 
  Country: None (occurrence: None)
  Receive Date: 20081022
  Receipt Date: 20081008
  Transmission Date: 20090506
  Serious: No
  Sender: FDA-Public Use
  Company Number: US-B.I. PHARMACEUTICALS,INC./RIDGEFIELD-2008-BP-15629BP

PATIENT

DRUGS (3)
  1. VIRAMUNE [Suspect]
     Indication: HIV INFECTION
     Dates: start: 20041201
  2. AZT [Concomitant]
     Indication: HIV INFECTION
     Dates: start: 20040101
  3. LAMIVUDINE [Concomitant]
     Indication: HIV INFECTION
     Dates: start: 20040101

REACTIONS (4)
  - FAT TISSUE INCREASED [None]
  - MUSCLE ATROPHY [None]
  - POLYDIPSIA [None]
  - WEIGHT DECREASED [None]
